FAERS Safety Report 24943727 (Version 2)
Quarter: 2025Q1

REPORT INFORMATION
  Report Type: Spontaneous
  Country: US (occurrence: US)
  Receive Date: 20250207
  Receipt Date: 20250218
  Transmission Date: 20250409
  Serious: No
  Sender: MYLAN
  Company Number: US-MYLANLABS-2025M1007223

PATIENT
  Age: 69 Year
  Sex: Female

DRUGS (13)
  1. TYRVAYA [Suspect]
     Active Substance: VARENICLINE TARTRATE
     Indication: Dry eye
     Dosage: 0.03 MILLIGRAM, BID (1 SPRAY IN EACH NOSTRIL TWICE DAILY)
     Route: 045
     Dates: start: 20250122
  2. ALPRAZOLAM [Concomitant]
     Active Substance: ALPRAZOLAM
     Route: 065
  3. DULOXETINE [Concomitant]
     Active Substance: DULOXETINE
     Route: 065
  4. EZETIMIBE [Concomitant]
     Active Substance: EZETIMIBE
     Route: 065
  5. FARXIGA [Concomitant]
     Active Substance: DAPAGLIFLOZIN PROPANEDIOL
     Route: 065
  6. FOLIC ACID [Concomitant]
     Active Substance: FOLIC ACID
     Route: 065
  7. GLIPIZIDE [Concomitant]
     Active Substance: GLIPIZIDE
     Route: 065
  8. METOPROLOL TARTRATE [Concomitant]
     Active Substance: METOPROLOL TARTRATE
     Route: 065
  9. MIEBO [Concomitant]
     Active Substance: PERFLUOROHEXYLOCTANE
     Route: 065
  10. PANTOPRAZOLE [Concomitant]
     Active Substance: PANTOPRAZOLE
     Route: 065
  11. PROMETHAZINE [Concomitant]
     Active Substance: PROMETHAZINE HYDROCHLORIDE
     Route: 065
  12. VUITY [Concomitant]
     Active Substance: PILOCARPINE HYDROCHLORIDE
     Route: 065
  13. RESTASIS [Concomitant]
     Active Substance: CYCLOSPORINE
     Route: 065

REACTIONS (6)
  - Nausea [Recovered/Resolved]
  - Vomiting [Recovered/Resolved]
  - Abdominal pain upper [Recovered/Resolved]
  - Nasal discomfort [Recovered/Resolved]
  - Abdominal discomfort [Recovered/Resolved]
  - Adverse event [Recovered/Resolved]

NARRATIVE: CASE EVENT DATE: 20250122
